FAERS Safety Report 22342328 (Version 3)
Quarter: 2023Q2

REPORT INFORMATION
  Report Type: Other
  Country: US (occurrence: None)
  Receive Date: 20230519
  Receipt Date: 20230609
  Transmission Date: 20230721
  Serious: Yes (Other)
  Sender: FDA-Public Use
  Company Number: US-ROCHE-3155729

PATIENT
  Age: 69 Year
  Sex: Female

DRUGS (14)
  1. OCREVUS [Suspect]
     Active Substance: OCRELIZUMAB
     Indication: Relapsing-remitting multiple sclerosis
     Dosage: RECEIVED HER LAST DOSE ON JUL/2022.
     Route: 042
  2. OCREVUS [Suspect]
     Active Substance: OCRELIZUMAB
     Dosage: INTO VEINS EVERY 6 MONTHS, 1 VIAL, REFILLS: 1 YEAR,
     Route: 042
  3. OCREVUS [Suspect]
     Active Substance: OCRELIZUMAB
     Route: 042
  4. DULCOLAX (BISACODYL) [Concomitant]
     Active Substance: BISACODYL
  5. MELATONIN [Concomitant]
     Active Substance: MELATONIN
  6. PROVIGIL [Concomitant]
     Active Substance: MODAFINIL
  7. GLYSET (UNITED STATES) [Concomitant]
  8. HIPREX (UNITED STATES) [Concomitant]
  9. MOBIC [Concomitant]
     Active Substance: MELOXICAM
  10. KEPPRA [Concomitant]
     Active Substance: LEVETIRACETAM
  11. DDAVP [Concomitant]
     Active Substance: DESMOPRESSIN ACETATE
  12. VITAMIN D3 [Concomitant]
     Active Substance: CHOLECALCIFEROL
  13. OSCAL [Concomitant]
     Active Substance: CALCIUM CARBONATE
  14. LIPITOR [Concomitant]
     Active Substance: ATORVASTATIN CALCIUM

REACTIONS (8)
  - Urinary tract infection [Unknown]
  - Encephalopathy [Unknown]
  - Off label use [Unknown]
  - Infection [Unknown]
  - Varicella zoster virus infection [Unknown]
  - Bradycardia [Unknown]
  - Hypothermia [Unknown]
  - Hypotension [Unknown]
